FAERS Safety Report 8002962-2 (Version None)
Quarter: 2011Q4

REPORT INFORMATION
  Report Type: 
  Country: None (occurrence: None)
  Receive Date: 20111222
  Receipt Date: 20110513
  Transmission Date: 20120403
  Serious: No
  Sender: FDA-Public Use
  Company Number: US-GLAXOSMITHKLINE-A0927319A

PATIENT
  Age: 67 Year
  Sex: Male

DRUGS (6)
  1. HYZAAR [Concomitant]
  2. LIPITOR [Concomitant]
  3. NEXIUM [Concomitant]
  4. ASMANEX TWISTHALER [Concomitant]
  5. JALYN [Suspect]
     Indication: PROSTATIC SPECIFIC ANTIGEN INCREASED
     Dosage: 1CAP SINGLE DOSE
     Route: 048
     Dates: start: 20110512
  6. AVODART [Suspect]
     Route: 048
     Dates: start: 20100501, end: 20110501

REACTIONS (2)
  - HYPOTENSION [None]
  - HYPERHIDROSIS [None]
